FAERS Safety Report 14858387 (Version 1)
Quarter: 2018Q2

REPORT INFORMATION
  Report Type: Spontaneous
  Country: US (occurrence: US)
  Receive Date: 20180508
  Receipt Date: 20180508
  Transmission Date: 20180711
  Serious: Yes (Other)
  Sender: FDA-Public Use
  Company Number: US-AMGEN-USASP2018060937

PATIENT
  Age: 41 Year
  Sex: Male
  Weight: 105 kg

DRUGS (3)
  1. HUMIRA [Suspect]
     Active Substance: ADALIMUMAB
     Dosage: 40 MG, UNK
     Route: 058
     Dates: start: 20180327
  2. ENBREL [Suspect]
     Active Substance: ETANERCEPT
     Indication: PRODUCT USED FOR UNKNOWN INDICATION
     Dosage: UNK
     Route: 065
     Dates: start: 201711, end: 201803
  3. HUMIRA [Suspect]
     Active Substance: ADALIMUMAB
     Indication: ANKYLOSING SPONDYLITIS
     Dosage: 40 MG, UNK
     Route: 058
     Dates: start: 20170511, end: 201711

REACTIONS (7)
  - Vocal cord inflammation [Recovered/Resolved]
  - Sinusitis [Recovered/Resolved]
  - Middle ear inflammation [Recovered/Resolved]
  - Bronchitis [Recovered/Resolved]
  - Rhinitis [Not Recovered/Not Resolved]
  - Pain in extremity [Recovered/Resolved]
  - Type 2 diabetes mellitus [Not Recovered/Not Resolved]

NARRATIVE: CASE EVENT DATE: 201801
